FAERS Safety Report 24187595 (Version 1)
Quarter: 2024Q3

REPORT INFORMATION
  Report Type: Report from Study
  Country: US (occurrence: None)
  Receive Date: 20240808
  Receipt Date: 20240808
  Transmission Date: 20241017
  Serious: Yes (Other)
  Sender: ASTRAZENECA
  Company Number: 2020SE25776

PATIENT
  Age: 58 Year
  Sex: Female
  Weight: 114.8 kg

DRUGS (5)
  1. SYMBICORT [Suspect]
     Active Substance: BUDESONIDE\FORMOTEROL FUMARATE DIHYDRATE
     Indication: Asthma
     Dosage: 89/4.5MCG, 2 PUFFS, TWO TIMES A DAY
     Route: 055
     Dates: start: 2005
  2. SYMBICORT [Suspect]
     Active Substance: BUDESONIDE\FORMOTEROL FUMARATE DIHYDRATE
     Indication: Chronic obstructive pulmonary disease
     Dosage: 89/4.5MCG, 2 PUFFS, TWO TIMES A DAY
     Route: 055
     Dates: start: 2005
  3. SYNTHROID [Concomitant]
     Active Substance: LEVOTHYROXINE SODIUM
     Indication: Thyroid disorder
     Route: 048
     Dates: start: 2005
  4. DILTIAZEM [Concomitant]
     Active Substance: DILTIAZEM
     Indication: Blood pressure measurement
     Route: 048
  5. CHLROITHIDONE [Concomitant]
     Indication: Blood pressure measurement
     Route: 048
     Dates: start: 2017

REACTIONS (7)
  - Chronic kidney disease [Unknown]
  - Hypoacusis [Unknown]
  - Vertigo [Unknown]
  - Vestibular disorder [Unknown]
  - Osteoarthritis [Unknown]
  - Dyspnoea [Unknown]
  - Sleep apnoea syndrome [Unknown]

NARRATIVE: CASE EVENT DATE: 20060101
